FAERS Safety Report 6747622-0 (Version None)
Quarter: 2010Q2

REPORT INFORMATION
  Report Type: 
  Country: None (occurrence: None)
  Receive Date: 20100528
  Receipt Date: 20100519
  Transmission Date: 20101027
  Serious: Yes (Other)
  Sender: FDA-Public Use
  Company Number: PHHY2010JP13480

PATIENT
  Sex: Male
  Weight: 50 kg

DRUGS (9)
  1. ZOMETA [Suspect]
     Indication: METASTASES TO BONE
     Dosage: 4 MG (EVERY 4 WEEKS)
     Route: 042
     Dates: start: 20081008, end: 20090701
  2. ZOMETA [Suspect]
     Dosage: 4 MG, UNK
     Route: 042
     Dates: start: 20091209, end: 20091209
  3. DECADRON [Concomitant]
     Indication: PROSTATE CANCER
     Dosage: 0.5 MG, UNK
     Route: 048
     Dates: start: 20080806, end: 20100303
  4. CANDESARTAN CILEXETIL [Concomitant]
     Indication: PROSTATE CANCER
     Dosage: 4 MG, UNK
     Route: 048
     Dates: start: 20081105
  5. TAKEPRON [Concomitant]
     Indication: PROPHYLAXIS
     Dosage: 15 MG, UNK
     Route: 048
     Dates: start: 20090925
  6. ASPIRIN [Concomitant]
     Indication: PROPHYLAXIS
     Dosage: 100 MG, UNK
     Route: 048
     Dates: start: 20090925, end: 20100303
  7. ETHINYL ESTRADIOL [Concomitant]
     Indication: PROSTATE CANCER
     Dosage: 1.5 MG, UNK
     Route: 048
     Dates: start: 20090925, end: 20100303
  8. ONEALFA [Concomitant]
     Route: 048
  9. TAXOTERE [Concomitant]
     Indication: PROSTATE CANCER
     Dosage: 80 MG, UNK
     Route: 042
     Dates: start: 20081008, end: 20100203

REACTIONS (10)
  - BLOOD ALKALINE PHOSPHATASE INCREASED [None]
  - BONE DISORDER [None]
  - C-REACTIVE PROTEIN INCREASED [None]
  - ORAL SURGERY [None]
  - OSTEONECROSIS OF JAW [None]
  - PROSTATIC SPECIFIC ANTIGEN INCREASED [None]
  - SWELLING [None]
  - TOOTH DEPOSIT [None]
  - TOOTH EXTRACTION [None]
  - WHITE BLOOD CELL COUNT INCREASED [None]
